FAERS Safety Report 15585834 (Version 5)
Quarter: 2019Q4

REPORT INFORMATION
  Report Type: Spontaneous
  Country: US (occurrence: US)
  Receive Date: 20181105
  Receipt Date: 20191030
  Transmission Date: 20200122
  Serious: No
  Sender: FDA-Public Use
  Company Number: US-VERTEX PHARMACEUTICALS-2018-005515

PATIENT
  Age: 22 Year
  Sex: Female

DRUGS (3)
  1. ORKAMBI [Suspect]
     Active Substance: IVACAFTOR\LUMACAFTOR
     Indication: CYSTIC FIBROSIS
     Dosage: 200/125MG (FREQUENCY UNSPECIFIED)
     Route: 048
     Dates: start: 20170301
  2. INSULIN [Concomitant]
     Active Substance: INSULIN NOS
  3. MIRALAX [Concomitant]
     Active Substance: POLYETHYLENE GLYCOL 3350

REACTIONS (5)
  - Cough [Recovering/Resolving]
  - Weight increased [Recovered/Resolved]
  - Menstruation irregular [Not Recovered/Not Resolved]
  - Pseudomonas test positive [Unknown]
  - Forced expiratory volume decreased [Not Recovered/Not Resolved]

NARRATIVE: CASE EVENT DATE: 2017
